FAERS Safety Report 10932935 (Version 1)
Quarter: 2015Q1

REPORT INFORMATION
  Report Type: Spontaneous
  Country: VN (occurrence: VN)
  Receive Date: 20150320
  Receipt Date: 20150320
  Transmission Date: 20150721
  Serious: Yes (Other)
  Sender: FDA-Public Use
  Company Number: VN-BAYER-2015-036925

PATIENT
  Age: 6 Month
  Sex: Female

DRUGS (4)
  1. CIPROFLOXACIN. [Suspect]
     Active Substance: CIPROFLOXACIN
     Indication: MENINGITIS SALMONELLA
     Dosage: 30 MG/KG, QD
     Dates: start: 200808
  2. IMIPENEM [Concomitant]
     Active Substance: IMIPENEM
     Indication: MENINGITIS SALMONELLA
     Dosage: 50 MG/KG, QD
  3. CEFOTAXIME [Concomitant]
     Active Substance: CEFOTAXIME\CEFOTAXIME SODIUM
     Indication: MENINGITIS SALMONELLA
     Dosage: INITIAL TREATMENT
  4. CHLORAMPHENICOL [Concomitant]
     Active Substance: CHLORAMPHENICOL
     Indication: MENINGITIS SALMONELLA
     Dosage: INITIAL TREATMENT

REACTIONS (4)
  - Product use issue [None]
  - Nervous system disorder [None]
  - Hydrocephalus [None]
  - Subdural effusion [None]

NARRATIVE: CASE EVENT DATE: 200808
